FAERS Safety Report 8226039-6 (Version None)
Quarter: 2012Q1

REPORT INFORMATION
  Report Type: 
  Country: None (occurrence: None)
  Receive Date: 20120321
  Receipt Date: 20120319
  Transmission Date: 20120608
  Serious: No
  Sender: FDA-Public Use
  Company Number: US-PFIZER INC-2012063515

PATIENT
  Sex: Female
  Weight: 47 kg

DRUGS (6)
  1. LEVOXYL [Concomitant]
     Dosage: UNK
  2. DILANTIN [Suspect]
     Indication: CONVULSION
     Dosage: 100MG ORAL CAPSULE FOUR TIMES A DAY FOR FOUR DAYS AND 100MG THREE TIMES A DAY FOR THREE DAYS
     Route: 048
     Dates: start: 19840101
  3. VIMPAT [Concomitant]
     Dosage: UNK
  4. MYSOLINE [Concomitant]
     Dosage: UNK
  5. TOPAMAX [Concomitant]
     Dosage: UNK
  6. MAXALT [Concomitant]
     Dosage: UNK

REACTIONS (2)
  - DENTAL CARIES [None]
  - MALAISE [None]
